FAERS Safety Report 14496731 (Version 1)
Quarter: 2018Q1

REPORT INFORMATION
  Report Type: Spontaneous
  Country: US (occurrence: US)
  Receive Date: 20180206
  Receipt Date: 20180206
  Transmission Date: 20180509
  Serious: Yes (Hospitalization)
  Sender: FDA-Public Use
  Company Number: None

PATIENT
  Age: 69 Year
  Sex: Female

DRUGS (9)
  1. LOSARTAN. [Concomitant]
     Active Substance: LOSARTAN
  2. DULOXETINE. [Concomitant]
     Active Substance: DULOXETINE
  3. ARIPPRAZOLE [Concomitant]
  4. FLUOXETINE [Concomitant]
     Active Substance: FLUOXETINE HYDROCHLORIDE
  5. OCALIVA [Suspect]
     Active Substance: OBETICHOLIC ACID
     Indication: BILIARY CIRRHOSIS
     Dosage: 1 TAB (5MG) DAILY PO
     Route: 048
     Dates: start: 20170313
  6. CLONAZEPAM. [Concomitant]
     Active Substance: CLONAZEPAM
  7. MIRTAZAPINE. [Concomitant]
     Active Substance: MIRTAZAPINE
  8. TEMAZEPAM. [Concomitant]
     Active Substance: TEMAZEPAM
  9. SIMVASTATIN. [Concomitant]
     Active Substance: SIMVASTATIN

REACTIONS (3)
  - Drug dose omission [None]
  - Psychotic disorder [None]
  - Mental disorder [None]

NARRATIVE: CASE EVENT DATE: 201801
